FAERS Safety Report 4945066-5 (Version None)
Quarter: 2006Q1

REPORT INFORMATION
  Report Type: 
  Country: None (occurrence: None)
  Receive Date: 20060117
  Receipt Date: 20050429
  Transmission Date: 20060701
  Serious: No
  Sender: FDA-Public Use
  Company Number: FEI2005-0777

PATIENT
  Sex: Female

DRUGS (2)
  1. INTRAUTERINE COPPER CONTRACEPTIVE [Suspect]
     Indication: CONTRACEPTION
     Dosage: INTRA-UTERINE
     Route: 015
     Dates: end: 20050428
  2. COUMADIN [Concomitant]

REACTIONS (3)
  - ABDOMINAL PAIN [None]
  - IUCD COMPLICATION [None]
  - VAGINAL HAEMORRHAGE [None]
